FAERS Safety Report 9023693 (Version 2)
Quarter: 2013Q1

REPORT INFORMATION
  Report Type: Spontaneous
  Country: DK (occurrence: CH)
  Receive Date: 20130121
  Receipt Date: 20130215
  Transmission Date: 20140127
  Serious: Yes (Hospitalization)
  Sender: FDA-Public Use
  Company Number: CH-FRI-1000041777

PATIENT
  Sex: Female

DRUGS (5)
  1. CITALOPRAM [Suspect]
     Indication: ANXIETY DISORDER
     Dosage: 20 MG
     Route: 048
     Dates: end: 20121126
  2. LEPONEX [Suspect]
     Indication: SCHIZOPHRENIA, PARANOID TYPE
     Route: 048
     Dates: start: 2012, end: 20121129
  3. ROCEPHIN [Suspect]
     Indication: PNEUMONIA ASPIRATION
     Route: 042
     Dates: start: 20121118
  4. STALEVO [Concomitant]
     Indication: PARKINSON^S DISEASE
     Dosage: 600 MG
     Route: 048
     Dates: start: 2010
  5. TEMESTA [Concomitant]
     Indication: ANXIETY DISORDER
     Dosage: 1 MG
     Route: 048
     Dates: end: 2012

REACTIONS (2)
  - Epilepsy [Recovering/Resolving]
  - Spinal fracture [Recovered/Resolved]
